FAERS Safety Report 9384822 (Version 2)
Quarter: 2013Q3

REPORT INFORMATION
  Report Type: Spontaneous
  Country: US (occurrence: US)
  Receive Date: 20130705
  Receipt Date: 20130723
  Transmission Date: 20140515
  Serious: No
  Sender: FDA-Public Use
  Company Number: US-PFIZER INC-2013197500

PATIENT
  Sex: Female

DRUGS (2)
  1. ADVIL [Suspect]
     Dosage: UNK
  2. ADVIL [Suspect]
     Dosage: 4 TABLETS IN 5 HOURS
     Dates: start: 20130701, end: 20130701

REACTIONS (2)
  - Extra dose administered [Unknown]
  - Nervousness [Unknown]
